FAERS Safety Report 7579250-1 (Version None)
Quarter: 2011Q2

REPORT INFORMATION
  Report Type: 
  Country: None (occurrence: None)
  Receive Date: 20110628
  Receipt Date: 20110622
  Transmission Date: 20111010
  Serious: Yes (Hospitalization)
  Sender: FDA-Public Use
  Company Number: US-GILEAD-2011-0040985

PATIENT
  Sex: Female

DRUGS (1)
  1. LETAIRIS [Suspect]
     Indication: PRODUCT USED FOR UNKNOWN INDICATION
     Route: 048
     Dates: start: 20070914

REACTIONS (4)
  - POST PROCEDURAL INFECTION [None]
  - SEPSIS [None]
  - BLOOD TEST ABNORMAL [None]
  - IMMUNODEFICIENCY [None]
